FAERS Safety Report 11288839 (Version 2)
Quarter: 2016Q1

REPORT INFORMATION
  Report Type: Report from Study
  Country: FR (occurrence: FR)
  Receive Date: 20150721
  Receipt Date: 20160127
  Transmission Date: 20160525
  Serious: Yes (Life-Threatening, Hospitalization)
  Sender: FDA-Public Use
  Company Number: PHHO2015FR008913

PATIENT
  Age: 62 Year
  Sex: Male
  Weight: 81.5 kg

DRUGS (23)
  1. CORTANCYL [Suspect]
     Active Substance: PREDNISONE
     Indication: RENAL TRANSPLANT
     Dosage: 5 MG, QD
     Route: 065
     Dates: start: 20141012
  2. MIDAZOLAM [Suspect]
     Active Substance: MIDAZOLAM\MIDAZOLAM HYDROCHLORIDE
     Indication: URETEROSCOPY
     Dosage: 2 MG, UNK
     Route: 065
     Dates: start: 20150703
  3. INEXIUM//ESOMEPRAZOLE MAGNESIUM [Concomitant]
     Active Substance: ESOMEPRAZOLE MAGNESIUM
     Indication: PROPHYLAXIS
     Dosage: 40 MG, QD
     Route: 048
     Dates: start: 20141012
  4. LASILIX [Concomitant]
     Active Substance: FUROSEMIDE
     Indication: OEDEMA
  5. LASIX [Concomitant]
     Active Substance: FUROSEMIDE
     Indication: HYPERTENSION
     Dosage: 125 MG, QD
     Route: 065
     Dates: end: 20150704
  6. MYFORTIC [Suspect]
     Active Substance: MYCOPHENOLATE SODIUM
     Indication: RENAL TRANSPLANT
     Dosage: 720 MG, BID
     Route: 065
     Dates: start: 20141012
  7. AUGMENTIN [Suspect]
     Active Substance: AMOXICILLIN\CLAVULANATE POTASSIUM
     Indication: URETEROSCOPY
     Dosage: 1 G, UNK
     Route: 065
     Dates: start: 20150703
  8. LASILIX [Concomitant]
     Active Substance: FUROSEMIDE
     Indication: HYPERTENSION
     Dosage: 500 MG, QD
     Route: 065
     Dates: start: 20141022
  9. ROVALCYTE [Concomitant]
     Active Substance: VALGANCICLOVIR HYDROCHLORIDE
     Indication: PROPHYLAXIS
     Dosage: 450 MG, QD
     Route: 065
     Dates: start: 20141024
  10. TEMERIT [Concomitant]
     Active Substance: NEBIVOLOL
     Indication: HYPERTENSION
     Dosage: 5 MG, QD
     Route: 065
     Dates: start: 20141121
  11. NEBIVOLOL. [Concomitant]
     Active Substance: NEBIVOLOL
     Indication: HYPERTENSION
     Dosage: 5 MG, QD
     Route: 065
     Dates: start: 20141121
  12. ARANESP [Concomitant]
     Active Substance: DARBEPOETIN ALFA
     Indication: ANAEMIA
     Dosage: 60 MG, UNK
     Route: 065
     Dates: start: 201410
  13. SIMULECT [Concomitant]
     Active Substance: BASILIXIMAB
     Indication: RENAL TRANSPLANT
     Dosage: 20 MG, UNK
     Route: 065
     Dates: start: 20141011, end: 20141016
  14. FUROSEMIDE. [Suspect]
     Active Substance: FUROSEMIDE
     Indication: PRODUCT USED FOR UNKNOWN INDICATION
     Route: 065
  15. PROPOFOL. [Suspect]
     Active Substance: PROPOFOL
     Indication: URETEROSCOPY
     Dosage: 150 MG, UNK
     Route: 065
     Dates: start: 20150703
  16. TACROLIMUS. [Suspect]
     Active Substance: TACROLIMUS
     Indication: RENAL TRANSPLANT
     Dosage: 2 MG, BID
     Route: 065
     Dates: start: 20141012
  17. KETAMINE [Suspect]
     Active Substance: KETAMINE
     Indication: URETEROSCOPY
     Dosage: 30 MG, UNK
     Route: 065
     Dates: start: 20150703
  18. ATRACURIUM [Suspect]
     Active Substance: ATRACURIUM
     Indication: URETEROSCOPY
     Dosage: 40 MG, UNK
     Route: 065
     Dates: start: 20150703
  19. APROVEL [Concomitant]
     Active Substance: IRBESARTAN
     Indication: HYPERTENSION
     Dosage: 75 MG, UNK
     Dates: start: 20150615
  20. IRBESARTAN. [Suspect]
     Active Substance: IRBESARTAN
     Indication: HYPERTENSION
     Dosage: 75 MG, QD
     Route: 065
     Dates: end: 20150706
  21. SPASFON [Suspect]
     Active Substance: PHLOROGLUCINOL
     Indication: URETEROSCOPY
     Dosage: 40 MG, UNK
     Route: 065
     Dates: start: 20150703
  22. SUFENTANIL [Suspect]
     Active Substance: SUFENTANIL
     Indication: URETEROSCOPY
     Dosage: 40 MG, UNK
     Route: 065
     Dates: start: 20150703
  23. LERCAN [Concomitant]
     Active Substance: LERCANIDIPINE
     Indication: HYPERTENSION
     Dosage: 20 MG, QD
     Route: 065
     Dates: start: 20141204

REACTIONS (7)
  - Anaphylactic reaction [Recovered/Resolved]
  - Pyelonephritis [Recovered/Resolved]
  - Acute kidney injury [Recovered/Resolved]
  - Pyelonephritis [Recovered/Resolved]
  - Enterococcal infection [Recovered/Resolved]
  - Acute kidney injury [Recovered/Resolved]
  - Urethral stenosis [Recovered/Resolved]

NARRATIVE: CASE EVENT DATE: 20150105
